FAERS Safety Report 4755157-X (Version None)
Quarter: 2005Q3

REPORT INFORMATION
  Report Type: 
  Country: None (occurrence: None)
  Receive Date: 20050829
  Receipt Date: 20050819
  Transmission Date: 20060218
  Serious: Yes (Other)
  Sender: FDA-Public Use
  Company Number: US-JNJFOC-20050804622

PATIENT
  Sex: Female

DRUGS (9)
  1. REMICADE [Suspect]
     Indication: CROHN'S DISEASE
     Dosage: PATIENT ON REMICADE MORE THAN A YEAR.
     Route: 042
  2. ASACOL [Concomitant]
  3. SYNTHROID [Concomitant]
  4. TOPROL-XL [Concomitant]
  5. CANASA [Concomitant]
  6. TYLENOL W/ CODEINE NO. 4 [Concomitant]
     Dosage: AS NECESSARY
  7. PRAMOZONE 2.5% [Concomitant]
  8. PRAMOZONE 2.5% [Concomitant]
  9. GADOLINIUM [Concomitant]

REACTIONS (1)
  - EMBOLISM [None]
